FAERS Safety Report 24732490 (Version 2)
Quarter: 2024Q4

REPORT INFORMATION
  Report Type: Spontaneous
  Country: TW (occurrence: TW)
  Receive Date: 20241213
  Receipt Date: 20241230
  Transmission Date: 20250115
  Serious: Yes (Death, Other)
  Sender: ALVOGEN
  Company Number: TW-LOTUS-2024-LOTUS-066050

PATIENT
  Sex: Male

DRUGS (2)
  1. LENALIDOMIDE [Suspect]
     Active Substance: LENALIDOMIDE
     Indication: Lymphoma
     Route: 048
     Dates: start: 20241106, end: 20241111
  2. ZANUBRUTINIB [Concomitant]
     Active Substance: ZANUBRUTINIB
     Indication: Product used for unknown indication

REACTIONS (2)
  - Discomfort [Fatal]
  - Gastric haemorrhage [Unknown]

NARRATIVE: CASE EVENT DATE: 20241101
